FAERS Safety Report 5096793-3 (Version None)
Quarter: 2006Q3

REPORT INFORMATION
  Report Type: 
  Country: None (occurrence: None)
  Receive Date: 20060831
  Receipt Date: 20060822
  Transmission Date: 20061208
  Serious: Yes (Other)
  Sender: FDA-Public Use
  Company Number: 2006103256

PATIENT
  Age: 72 Year
  Sex: Male
  Weight: 88 kg

DRUGS (6)
  1. HYDROCORTISONE ACETATE [Suspect]
     Indication: DRUG USE FOR UNKNOWN INDICATION
     Dosage: ORAL
     Route: 048
     Dates: start: 19760701
  2. ACETYLSALICYLIC ACID [Concomitant]
  3. ATORVASTATIN CALCIUM [Concomitant]
  4. CLOPIDOGREL [Concomitant]
  5. FLUDROCORTISONE [Concomitant]
  6. RAMIPRIL [Concomitant]

REACTIONS (4)
  - FOOD POISONING [None]
  - HYPERGLYCAEMIA [None]
  - MALAISE [None]
  - PYREXIA [None]
